FAERS Safety Report 5796191-0 (Version None)
Quarter: 2008Q3

REPORT INFORMATION
  Report Type: 
  Country: None (occurrence: None)
  Receive Date: 20080701
  Receipt Date: 20080623
  Transmission Date: 20090109
  Serious: Yes (Death, Life-Threatening, Other)
  Sender: FDA-Public Use
  Company Number: GB-JNJFOC-20080602914

PATIENT
  Age: 6 Decade
  Sex: Male

DRUGS (4)
  1. REMICADE [Suspect]
     Indication: RHEUMATOID ARTHRITIS
     Route: 042
  2. PREDNISOLONE [Concomitant]
  3. LEFLUNOMIDE [Concomitant]
  4. KETOPROFEN [Concomitant]

REACTIONS (1)
  - PROSTATE CANCER METASTATIC [None]
